FAERS Safety Report 13591204 (Version 1)
Quarter: 2017Q2

REPORT INFORMATION
  Report Type: Report from Study
  Country: CA (occurrence: CA)
  Receive Date: 20170530
  Receipt Date: 20170530
  Transmission Date: 20170830
  Serious: Yes (Hospitalization)
  Sender: FDA-Public Use
  Company Number: CA-APOPHARMA INC-2017AP011282

PATIENT
  Sex: Female
  Weight: 53 kg

DRUGS (1)
  1. FERRIPROX [Suspect]
     Active Substance: DEFERIPRONE
     Indication: THALASSAEMIA
     Dosage: 35 MG/KG, TID
     Route: 048
     Dates: start: 20100528

REACTIONS (2)
  - Hepatic enzyme increased [Unknown]
  - Chest pain [Unknown]
